FAERS Safety Report 9721539 (Version 1)
Quarter: 2013Q4

REPORT INFORMATION
  Report Type: Spontaneous
  Country: US (occurrence: US)
  Receive Date: 20131130
  Receipt Date: 20131130
  Transmission Date: 20140711
  Serious: Yes (Life-Threatening, Hospitalization)
  Sender: FDA-Public Use
  Company Number: US-BRISTOL-MYERS SQUIBB COMPANY-19851773

PATIENT
  Age: 47 Year
  Sex: Male

DRUGS (6)
  1. REYATAZ [Suspect]
  2. TRUVADA [Concomitant]
  3. PENICILLIN G [Concomitant]
  4. FAMOTIDINE [Concomitant]
  5. HEPARIN [Concomitant]
     Route: 058
  6. INSULIN [Concomitant]

REACTIONS (2)
  - Sepsis [Unknown]
  - Mental status changes [Unknown]
